FAERS Safety Report 9053883 (Version 2)
Quarter: 2013Q2

REPORT INFORMATION
  Report Type: Spontaneous
  Country: SG (occurrence: SG)
  Receive Date: 20130206
  Receipt Date: 20130402
  Transmission Date: 20140414
  Serious: Yes (Other)
  Sender: FDA-Public Use
  Company Number: SG-RANBAXY-2013RR-64813

PATIENT
  Age: 49 Year
  Sex: Female

DRUGS (2)
  1. ACICLOVIR [Suspect]
     Indication: HERPES SIMPLEX
     Dosage: 400 MG, BID
     Route: 065
  2. ESOMEPRAZOLE [Concomitant]
     Indication: PRODUCT USED FOR UNKNOWN INDICATION
     Dosage: UNK
     Route: 042

REACTIONS (4)
  - Neurotoxicity [Recovered/Resolved]
  - Coordination abnormal [Recovered/Resolved]
  - Balance disorder [Recovered/Resolved]
  - Dysarthria [Recovered/Resolved]
